FAERS Safety Report 10527297 (Version 2)
Quarter: 2014Q4

REPORT INFORMATION
  Report Type: Spontaneous
  Country: US (occurrence: US)
  Receive Date: 20141020
  Receipt Date: 20141020
  Transmission Date: 20150528
  Serious: No
  Sender: FDA-Public Use
  Company Number: US-US-EMD SERONO, INC.-7321816

PATIENT
  Sex: Male
  Weight: 104 kg

DRUGS (1)
  1. REBIF [Suspect]
     Active Substance: INTERFERON BETA-1A
     Indication: PRODUCT USED FOR UNKNOWN INDICATION
     Route: 058
     Dates: start: 201404

REACTIONS (4)
  - Gait disturbance [Unknown]
  - Arthritis [Unknown]
  - Crohn^s disease [Unknown]
  - Injection site pain [Unknown]
